FAERS Safety Report 23582088 (Version 1)
Quarter: 2024Q1

REPORT INFORMATION
  Report Type: Spontaneous
  Country: BR (occurrence: BR)
  Receive Date: 20240229
  Receipt Date: 20240229
  Transmission Date: 20240410
  Serious: No
  Sender: FDA-Public Use
  Company Number: BR-WW-2023-AMR-178151

PATIENT
  Sex: Female

DRUGS (1)
  1. DUTASTERIDE [Suspect]
     Active Substance: DUTASTERIDE
     Indication: Hair disorder
     Route: 065

REACTIONS (2)
  - Product prescribing issue [Unknown]
  - Product prescribing error [Unknown]
